FAERS Safety Report 13510982 (Version 1)
Quarter: 2017Q2

REPORT INFORMATION
  Report Type: Spontaneous
  Country: SE (occurrence: SE)
  Receive Date: 20170503
  Receipt Date: 20170503
  Transmission Date: 20170830
  Serious: Yes (Other)
  Sender: FDA-Public Use
  Company Number: SE-TEVA-763797ISR

PATIENT
  Age: 40 Year
  Sex: Female

DRUGS (1)
  1. SUMATRIPTAN TEVA [Suspect]
     Active Substance: SUMATRIPTAN
     Indication: MIGRAINE
     Route: 048
     Dates: start: 2010

REACTIONS (1)
  - Lipoedema [Unknown]

NARRATIVE: CASE EVENT DATE: 201704
